FAERS Safety Report 21270564 (Version 1)
Quarter: 2022Q3

REPORT INFORMATION
  Report Type: Spontaneous
  Country: FR (occurrence: FR)
  Receive Date: 20220830
  Receipt Date: 20220830
  Transmission Date: 20221027
  Serious: Yes (Hospitalization)
  Sender: FDA-Public Use
  Company Number: None

PATIENT
  Age: 82 Year
  Sex: Male

DRUGS (2)
  1. MIRTAZAPINE [Suspect]
     Active Substance: MIRTAZAPINE
     Indication: Depression
     Dosage: UNIT DOSE : 45 MG, THERAPY DURATION : 204 DAYS
     Route: 065
     Dates: start: 2022, end: 20220724
  2. SERTRALINE [Suspect]
     Active Substance: SERTRALINE HYDROCHLORIDE
     Indication: Depression
     Dosage: UNIT DOSE : 50 MG, THERAPY DURATION : 214 DAYS
     Route: 065
     Dates: start: 2022, end: 20220803

REACTIONS (1)
  - Convulsive threshold lowered [Recovering/Resolving]

NARRATIVE: CASE EVENT DATE: 20220717
